FAERS Safety Report 8351976-1 (Version None)
Quarter: 2012Q2

REPORT INFORMATION
  Report Type: 
  Country: None (occurrence: None)
  Receive Date: 20120510
  Receipt Date: 20120510
  Transmission Date: 20120825
  Serious: Yes (Hospitalization)
  Sender: FDA-Public Use
  Company Number: None

PATIENT
  Sex: Female
  Weight: 58.51 kg

DRUGS (1)
  1. FASLODEX [Suspect]
     Dosage: 100 MG
     Dates: end: 20120501

REACTIONS (4)
  - HYPOAESTHESIA [None]
  - INADEQUATE ANALGESIA [None]
  - PAIN IN EXTREMITY [None]
  - BACK PAIN [None]
